FAERS Safety Report 8398646-1 (Version None)
Quarter: 2012Q2

REPORT INFORMATION
  Report Type: 
  Country: None (occurrence: None)
  Receive Date: 20120323
  Receipt Date: 20111207
  Transmission Date: 20120825
  Serious: Yes (Other)
  Sender: FDA-Public Use
  Company Number: 163-21880-11111944

PATIENT
  Age: 70 Year
  Sex: Male
  Weight: 75.7507 kg

DRUGS (8)
  1. COUMADIN [Concomitant]
  2. DEXAMETHASONE [Concomitant]
  3. PREVACID [Concomitant]
  4. PRAVASTATIN [Concomitant]
  5. REVLIMID [Suspect]
     Indication: MULTIPLE MYELOMA
     Dosage: 15 MG, 1 IN 1 D, PO, 10 MG, DAILY X 21 DAYS Q 28 DAYS, PO
     Route: 048
     Dates: start: 20100119, end: 20110101
  6. REVLIMID [Suspect]
     Indication: MULTIPLE MYELOMA
     Dosage: 15 MG, 1 IN 1 D, PO, 10 MG, DAILY X 21 DAYS Q 28 DAYS, PO
     Route: 048
     Dates: start: 20110701
  7. GABAPENTIN [Concomitant]
  8. LOVASTATIN [Concomitant]

REACTIONS (7)
  - BLOOD POTASSIUM DECREASED [None]
  - CONDITION AGGRAVATED [None]
  - CATARACT [None]
  - WEIGHT INCREASED [None]
  - BLOOD POTASSIUM [None]
  - VISUAL IMPAIRMENT [None]
  - ABDOMINAL DISCOMFORT [None]
